FAERS Safety Report 5441911-8 (Version None)
Quarter: 2007Q3

REPORT INFORMATION
  Report Type: 
  Country: None (occurrence: None)
  Receive Date: 20070904
  Receipt Date: 20070827
  Transmission Date: 20080115
  Serious: Yes (Hospitalization)
  Sender: FDA-Public Use
  Company Number: AU-ELI_LILLY_AND_COMPANY-AU200708005574

PATIENT
  Age: 55 Year
  Sex: Female
  Weight: 91 kg

DRUGS (7)
  1. LISPRO 50LIS50NPL [Suspect]
     Indication: TYPE 2 DIABETES MELLITUS
     Dosage: 14 IU, DAILY (1/D)
     Route: 058
     Dates: start: 20070626
  2. LISPRO 50LIS50NPL [Suspect]
     Dosage: 6 IU, EACH MORNING
     Route: 058
     Dates: start: 20070710
  3. METFORMIN HCL [Concomitant]
     Indication: DIABETES MELLITUS
     Dates: start: 19950101
  4. AMARYL [Concomitant]
     Indication: DIABETES MELLITUS
     Dates: start: 20030101
  5. ATORVASTATIN [Concomitant]
     Indication: HYPERCHOLESTEROLAEMIA
     Dates: start: 20070401
  6. ZOLOFT [Concomitant]
     Indication: DEPRESSION
     Dates: start: 20010101
  7. LATANOPROST [Concomitant]
     Indication: GLAUCOMA
     Dates: start: 20020101

REACTIONS (1)
  - SYNCOPE [None]
